FAERS Safety Report 14804371 (Version 2)
Quarter: 2020Q1

REPORT INFORMATION
  Report Type: Spontaneous
  Country: ES (occurrence: ES)
  Receive Date: 20180425
  Receipt Date: 20200212
  Transmission Date: 20200409
  Serious: Yes (Hospitalization)
  Sender: FDA-Public Use
  Company Number: PHHY2017ES202525

PATIENT
  Age: 65 Year
  Sex: Male

DRUGS (1)
  1. TACROLIMUS. [Suspect]
     Active Substance: TACROLIMUS
     Indication: NEPHROTIC SYNDROME
     Dosage: LEVEL-ADJUSTED TACROLIMUS WAS INITIATED (RANGE 8-12 NG / ML)
     Route: 065

REACTIONS (2)
  - Off label use [Unknown]
  - Guillain-Barre syndrome [Recovering/Resolving]
